FAERS Safety Report 11158338 (Version 1)
Quarter: 2015Q2

REPORT INFORMATION
  Report Type: Spontaneous
  Country: US (occurrence: None)
  Receive Date: 20150514
  Receipt Date: 20150514
  Transmission Date: 20150821
  Serious: Yes (Death)
  Sender: FDA-Public Use
  Company Number: 2015010062

PATIENT
  Age: 19 Year
  Sex: Female

DRUGS (10)
  1. ZOLPIDEM (ZOLPIDEM) [Suspect]
     Active Substance: ZOLPIDEM TARTRATE
  2. HYDROCODONE W/ACETAMINOPHEN (HYDROCODONE, ACETAMINOPHEN) [Suspect]
     Active Substance: ACETAMINOPHEN\HYDROCODONE BITARTRATE
  3. QUETIAPINE (QUETIAPINE) [Suspect]
     Active Substance: QUETIAPINE
  4. HYDROXYZINE [Suspect]
     Active Substance: HYDROXYZINE\HYDROXYZINE HYDROCHLORIDE
  5. NAPROXEN (NAPROXEN) [Suspect]
     Active Substance: NAPROXEN
  6. IBUPROFEN (IBUPROFEN) [Suspect]
     Active Substance: IBUPROFEN
  7. ACETAMINOPHEN (ACETAMINOPHEN) [Suspect]
     Active Substance: ACETAMINOPHEN
  8. WARFARIN (WARFARIN) [Suspect]
     Active Substance: WARFARIN
  9. NABUMETONE. [Suspect]
     Active Substance: NABUMETONE
  10. BENZONATE [Suspect]
     Active Substance: BENZONATATE

REACTIONS (2)
  - Completed suicide [None]
  - Cardio-respiratory arrest [None]

NARRATIVE: CASE EVENT DATE: 2013
